FAERS Safety Report 18669496 (Version 1)
Quarter: 2020Q4

REPORT INFORMATION
  Report Type: Spontaneous
  Country: US (occurrence: US)
  Receive Date: 20201228
  Receipt Date: 20201228
  Transmission Date: 20210114
  Serious: No
  Sender: FDA-Public Use
  Company Number: US-COOPERSURGICAL, INC.-US-2020CPS001314

PATIENT
  Age: 40 Year
  Sex: Female
  Weight: 68.27 kg

DRUGS (3)
  1. PARAGARD T 380A [Suspect]
     Active Substance: COPPER
     Indication: CONTRACEPTION
     Dosage: UNK
     Route: 015
     Dates: start: 201911, end: 20200430
  2. VITAMINS                           /00067501/ [Concomitant]
     Active Substance: VITAMINS
     Indication: SUPPLEMENTATION THERAPY
     Route: 065
  3. PARAGARD T 380A [Suspect]
     Active Substance: COPPER
     Dosage: UNK
     Route: 015
     Dates: start: 20200430

REACTIONS (8)
  - Headache [Unknown]
  - Complication associated with device [Not Recovered/Not Resolved]
  - Menstruation irregular [Unknown]
  - Sensation of foreign body [Recovered/Resolved]
  - Paraesthesia [Unknown]
  - Pain [Unknown]
  - Dysfunctional uterine bleeding [Unknown]
  - Back pain [Unknown]

NARRATIVE: CASE EVENT DATE: 20200429
